FAERS Safety Report 18427636 (Version 1)
Quarter: 2020Q4

REPORT INFORMATION
  Report Type: Spontaneous
  Country: US (occurrence: US)
  Receive Date: 20201026
  Receipt Date: 20201026
  Transmission Date: 20210114
  Serious: No
  Sender: FDA-Public Use
  Company Number: US-TEVA-2020-US-1837981

PATIENT

DRUGS (3)
  1. EMGALITY [Suspect]
     Active Substance: GALCANEZUMAB-GNLM
     Indication: MIGRAINE PROPHYLAXIS
     Route: 065
     Dates: start: 20190712
  2. AJOVY [Suspect]
     Active Substance: FREMANEZUMAB-VFRM
     Indication: MIGRAINE PROPHYLAXIS
     Route: 065
     Dates: start: 20181031, end: 20190531
  3. AJOVY [Suspect]
     Active Substance: FREMANEZUMAB-VFRM

REACTIONS (6)
  - Weight increased [Not Recovered/Not Resolved]
  - Fatigue [Unknown]
  - Rash macular [Unknown]
  - Sinus headache [Unknown]
  - Contusion [Not Recovered/Not Resolved]
  - Oedema peripheral [Unknown]

NARRATIVE: CASE EVENT DATE: 201905
